FAERS Safety Report 5125453-5 (Version None)
Quarter: 2006Q3

REPORT INFORMATION
  Report Type: 
  Country: None (occurrence: None)
  Receive Date: 20060822
  Receipt Date: 20060721
  Transmission Date: 20061208
  Serious: No
  Sender: FDA-Public Use
  Company Number: PHEH2006US09464

PATIENT
  Age: 81 Year
  Sex: Female

DRUGS (9)
  1. ENABLEX [Suspect]
     Indication: HYPERTONIC BLADDER
     Dosage: 7.5 MG, QD
     Dates: start: 20060701
  2. TOPROL-XL [Concomitant]
  3. LISINOPRIL [Concomitant]
  4. ZETIA [Concomitant]
  5. THEO-DUR [Concomitant]
  6. FLORINEF [Concomitant]
  7. NIASPAN [Concomitant]
  8. NEURONTIN [Concomitant]
  9. ASPIRIN [Concomitant]

REACTIONS (1)
  - DRUG INEFFECTIVE [None]
